FAERS Safety Report 7757783-2 (Version None)
Quarter: 2011Q3

REPORT INFORMATION
  Report Type: 
  Country: None (occurrence: None)
  Receive Date: 20110918
  Receipt Date: 20110908
  Transmission Date: 20111222
  Serious: Yes (Other)
  Sender: FDA-Public Use
  Company Number: US-ASTRAZENECA-2011SE54229

PATIENT
  Age: 44 Year
  Sex: Male

DRUGS (2)
  1. OTHER MEDICATIONS [Suspect]
     Route: 065
  2. SEROQUEL [Suspect]
     Indication: DEPRESSION
     Route: 048

REACTIONS (3)
  - SUICIDAL IDEATION [None]
  - DRUG DOSE OMISSION [None]
  - AGITATION [None]
